FAERS Safety Report 9316140 (Version 1)
Quarter: 2013Q2

REPORT INFORMATION
  Report Type: Spontaneous
  Country: GB (occurrence: GB)
  Receive Date: 20130530
  Receipt Date: 20130530
  Transmission Date: 20140414
  Serious: Yes (Other)
  Sender: FDA-Public Use
  Company Number: GB-RANBAXY-2013R1-69326

PATIENT
  Age: 16 Year
  Sex: Male

DRUGS (2)
  1. AMOXICILLIN [Suspect]
     Indication: TOOTH ABSCESS
     Dosage: 500 MG, TID
     Route: 048
     Dates: start: 20130415, end: 20130416
  2. METRONIDAZOLE [Concomitant]
     Indication: TOOTH ABSCESS
     Dosage: 200 MG, TID
     Route: 048
     Dates: start: 20130415, end: 20130421

REACTIONS (1)
  - Swelling [Recovering/Resolving]
